FAERS Safety Report 9747559 (Version 2)
Quarter: 2014Q2

REPORT INFORMATION
  Report Type: Report from Study
  Country: CA (occurrence: CA)
  Receive Date: 20131212
  Receipt Date: 20140523
  Transmission Date: 20141212
  Serious: Yes (Other)
  Sender: FDA-Public Use
  Company Number: CA-JNJFOC-20131204160

PATIENT
  Sex: Female
  Weight: 60 kg

DRUGS (1)
  1. REMICADE [Suspect]
     Indication: CROHN^S DISEASE
     Route: 042
     Dates: start: 20110707, end: 201309

REACTIONS (8)
  - Coordination abnormal [Not Recovered/Not Resolved]
  - Insomnia [Unknown]
  - Restless legs syndrome [Unknown]
  - Fatigue [Unknown]
  - Muscular weakness [Unknown]
  - Chest discomfort [Not Recovered/Not Resolved]
  - Paraesthesia [Not Recovered/Not Resolved]
  - Adverse drug reaction [Unknown]
